FAERS Safety Report 5353550-8 (Version None)
Quarter: 2007Q2

REPORT INFORMATION
  Report Type: 
  Country: None (occurrence: None)
  Receive Date: 20070612
  Receipt Date: 20070605
  Transmission Date: 20071010
  Serious: Yes (Hospitalization)
  Sender: FDA-Public Use
  Company Number: HQWYE319123MAY07

PATIENT
  Age: 63 Year
  Sex: Male

DRUGS (3)
  1. AMIODARONE HCL [Suspect]
     Indication: ATRIAL FIBRILLATION
     Route: 048
     Dates: end: 20070301
  2. AMIODARONE HCL [Suspect]
     Route: 048
     Dates: start: 20070310, end: 20070101
  3. AMIODARONE HCL [Suspect]
     Route: 048
     Dates: start: 20070101, end: 20070420

REACTIONS (3)
  - ANOREXIA [None]
  - PLEURAL EFFUSION [None]
  - PULMONARY OEDEMA [None]
